FAERS Safety Report 8295388-8 (Version None)
Quarter: 2012Q2

REPORT INFORMATION
  Report Type: 
  Country: None (occurrence: None)
  Receive Date: 20120418
  Receipt Date: 20120403
  Transmission Date: 20120825
  Serious: Yes (Hospitalization)
  Sender: FDA-Public Use
  Company Number: JP-ROCHE-1057911

PATIENT
  Sex: Male

DRUGS (4)
  1. HALCION [Concomitant]
     Indication: INSOMNIA
     Route: 048
     Dates: end: 20100823
  2. RALTEGRAVIR [Suspect]
     Indication: HIV INFECTION
     Route: 048
  3. INVIRASE [Suspect]
     Indication: HIV INFECTION
     Route: 048
     Dates: start: 20061026
  4. LOPINAVIR AND RITONAVIR [Suspect]
     Indication: HIV INFECTION
     Route: 048

REACTIONS (2)
  - CARDIAC FAILURE [None]
  - HEPATIC FUNCTION ABNORMAL [None]
